FAERS Safety Report 7429340-9 (Version None)
Quarter: 2011Q2

REPORT INFORMATION
  Report Type: 
  Country: None (occurrence: None)
  Receive Date: 20110421
  Receipt Date: 20110413
  Transmission Date: 20111010
  Serious: Yes (Other)
  Sender: FDA-Public Use
  Company Number: US-SANOFI-AVENTIS-2011SA019877

PATIENT
  Age: 66 Year
  Sex: Male
  Weight: 90.9 kg

DRUGS (4)
  1. PLAVIX [Suspect]
     Indication: CEREBROVASCULAR ACCIDENT
     Route: 048
     Dates: start: 19970324, end: 20090101
  2. ACIPHEX [Concomitant]
  3. DOXAZOSIN [Concomitant]
  4. ATENOLOL [Concomitant]

REACTIONS (5)
  - CEREBROVASCULAR ACCIDENT [None]
  - FACIAL BONES FRACTURE [None]
  - RIB FRACTURE [None]
  - FALL [None]
  - HAEMORRHAGE [None]
